FAERS Safety Report 7973250-5 (Version None)
Quarter: 2011Q4

REPORT INFORMATION
  Report Type: 
  Country: None (occurrence: None)
  Receive Date: 20111213
  Receipt Date: 20111202
  Transmission Date: 20120403
  Serious: Yes (Hospitalization, Other)
  Sender: FDA-Public Use
  Company Number: PHEH2011US008581

PATIENT
  Sex: Male

DRUGS (17)
  1. SANDOSTATIN [Suspect]
     Dosage: 100 MCG
     Dates: start: 20101015
  2. SANDOSTATIN [Suspect]
     Dosage: 100 MCG
     Dates: start: 20111010
  3. SANDOSTATIN LAR [Suspect]
     Indication: CARCINOID SYNDROME
     Dosage: 30 MG, ONCE EVERY 30 DAYS
     Route: 030
     Dates: start: 20100903
  4. PRILOSEC [Concomitant]
     Dosage: 20 MG, DAILY
     Route: 048
  5. SODIUM CHLORIDE [Concomitant]
     Dosage: 2.5 MG, FOUR TIMES DAILY
  6. SUTENT [Concomitant]
     Dosage: 25 MG, DAILY
     Dates: start: 20101005
  7. ATIVAN [Concomitant]
     Indication: NAUSEA
  8. ROXICODONE [Concomitant]
     Indication: PAIN
     Dosage: 10 MG, EVERY 6 HOURS, AS NEEDED
     Route: 048
  9. NAPROSYN [Concomitant]
     Indication: PYREXIA
  10. SANDOSTATIN [Suspect]
     Indication: CARCINOID SYNDROME
     Dosage: 100 MCG
     Route: 058
     Dates: start: 20100517
  11. SUTENT [Concomitant]
     Dosage: 12.5 MG, DAILY FOR 30 DAYS, THEN 2 WEEKS NO DRUG
     Route: 048
     Dates: start: 20100907, end: 20100924
  12. SUTENT [Concomitant]
     Dosage: 37.5 MG, UNK
     Dates: start: 20110727
  13. PROVENTIL [Concomitant]
     Indication: WHEEZING
     Dosage: 90 MCG 1 PUFF EVERY 4 HOURS AS NEEDED
  14. NAPROSYN [Concomitant]
     Indication: PAIN
     Dosage: 250 MG, UNK
     Route: 048
  15. PROVENTIL [Concomitant]
     Indication: DYSPNOEA
  16. ATIVAN [Concomitant]
     Indication: ANXIETY
     Route: 048
  17. TEMOZOLOMIDE [Concomitant]
     Indication: HEPATOMEGALY
     Dosage: 200 MG/M2

REACTIONS (29)
  - FLUSHING [None]
  - LETHARGY [None]
  - PNEUMOTHORAX [None]
  - BACK PAIN [None]
  - BLOOD CHLORIDE DECREASED [None]
  - WHITE BLOOD CELL COUNT INCREASED [None]
  - HAEMOGLOBIN DECREASED [None]
  - CAECITIS [None]
  - CHEST PAIN [None]
  - DEHYDRATION [None]
  - NEOPLASM PROGRESSION [None]
  - BLOOD SODIUM DECREASED [None]
  - PROTEIN TOTAL DECREASED [None]
  - HEPATOMEGALY [None]
  - LIVER FUNCTION TEST ABNORMAL [None]
  - INCORRECT DOSE ADMINISTERED [None]
  - RED BLOOD CELL COUNT DECREASED [None]
  - BLOOD ALBUMIN DECREASED [None]
  - PERITONEAL LESION [None]
  - METASTASES TO LIVER [None]
  - PYREXIA [None]
  - HEPATIC LESION [None]
  - METASTASES TO BONE [None]
  - BLOOD GLUCOSE INCREASED [None]
  - BRONCHIAL OBSTRUCTION [None]
  - NEOPLASM MALIGNANT [None]
  - ANXIETY [None]
  - ABDOMINAL PAIN [None]
  - SPLENIC LESION [None]
